FAERS Safety Report 21656094 (Version 1)
Quarter: 2022Q4

REPORT INFORMATION
  Report Type: Spontaneous
  Country: SE (occurrence: SE)
  Receive Date: 20221129
  Receipt Date: 20221129
  Transmission Date: 20230113
  Serious: Yes (Death, Other)
  Sender: FDA-Public Use
  Company Number: None

PATIENT
  Age: 48 Year
  Sex: Male
  Weight: 83 kg

DRUGS (6)
  1. ZOLPIDEM TARTRATE [Suspect]
     Active Substance: ZOLPIDEM TARTRATE
     Indication: Anxiety
     Dosage: UNK
     Route: 048
     Dates: start: 20221017
  2. ZOLPIDEM TARTRATE [Suspect]
     Active Substance: ZOLPIDEM TARTRATE
     Indication: Insomnia
     Dosage: UNK
  3. PROPIOMAZINE [Suspect]
     Active Substance: PROPIOMAZINE
     Dosage: UNK UNK, QD
     Route: 048
     Dates: start: 20221021
  4. SERTRALINE [Suspect]
     Active Substance: SERTRALINE HYDROCHLORIDE
     Indication: Depression
     Dosage: 3 DF, QD
     Route: 048
     Dates: start: 20221014
  5. SERTRALINE [Suspect]
     Active Substance: SERTRALINE HYDROCHLORIDE
     Indication: Anxiety
  6. OXAZEPAM [Concomitant]
     Active Substance: OXAZEPAM
     Indication: Anxiety
     Dosage: 1 DF, BID
     Route: 048
     Dates: start: 20221017

REACTIONS (3)
  - Completed suicide [Fatal]
  - Thinking abnormal [Fatal]
  - Visual impairment [Fatal]

NARRATIVE: CASE EVENT DATE: 20221031
